FAERS Safety Report 5415306-7 (Version None)
Quarter: 2007Q3

REPORT INFORMATION
  Report Type: 
  Country: None (occurrence: None)
  Receive Date: 20070813
  Receipt Date: 20070726
  Transmission Date: 20080115
  Serious: Yes (Other)
  Sender: FDA-Public Use
  Company Number: 2007BI006381

PATIENT
  Age: 55 Year

DRUGS (1)
  1. NATALIZUMAB (NATALIZUMAB) [Suspect]
     Indication: MULTIPLE SCLEROSIS
     Dates: start: 20060825

REACTIONS (2)
  - DRUG EFFECT DECREASED [None]
  - NEUTROPHIL COUNT DECREASED [None]
